FAERS Safety Report 21604758 (Version 1)
Quarter: 2022Q4

REPORT INFORMATION
  Report Type: Spontaneous
  Country: US (occurrence: US)
  Receive Date: 20221116
  Receipt Date: 20221116
  Transmission Date: 20230113
  Serious: No
  Sender: FDA-Public Use
  Company Number: US-PFIZER INC-202201296119

PATIENT
  Age: 76 Year
  Sex: Female

DRUGS (1)
  1. DEPO-ESTRADIOL [Suspect]
     Active Substance: ESTRADIOL CYPIONATE
     Dosage: UNK

REACTIONS (4)
  - Menopausal disorder [Unknown]
  - Depressed mood [Unknown]
  - Crying [Unknown]
  - Depression [Unknown]
